FAERS Safety Report 6595036-9 (Version None)
Quarter: 2010Q1

REPORT INFORMATION
  Report Type: 
  Country: None (occurrence: None)
  Receive Date: 20100222
  Receipt Date: 20100212
  Transmission Date: 20100710
  Serious: Yes (Hospitalization)
  Sender: FDA-Public Use
  Company Number: JP-ABBOTT-10P-087-0625885-00

PATIENT
  Sex: Female
  Weight: 57 kg

DRUGS (16)
  1. HUMIRA [Suspect]
     Indication: RHEUMATOID ARTHRITIS
     Route: 058
     Dates: start: 20090811
  2. PREDNISOLONE [Concomitant]
     Indication: RHEUMATOID ARTHRITIS
     Route: 048
     Dates: end: 20090917
  3. PREDNISOLONE [Concomitant]
     Route: 048
     Dates: start: 20090918, end: 20091112
  4. PREDNISOLONE [Concomitant]
     Route: 048
     Dates: start: 20091113, end: 20100106
  5. PREDNISOLONE [Concomitant]
     Route: 048
     Dates: start: 20100107, end: 20100204
  6. PREDNISOLONE [Concomitant]
     Route: 048
     Dates: start: 20100205
  7. ISONIAZID [Concomitant]
     Indication: ANTIBIOTIC PROPHYLAXIS
  8. PYRIDOXAL PHOSPHATE [Concomitant]
     Indication: ADVERSE DRUG REACTION
  9. PYRIDOXAL PHOSPHATE [Concomitant]
     Indication: PROPHYLAXIS
  10. MECOBALAMIN [Concomitant]
     Indication: DRUG USE FOR UNKNOWN INDICATION
  11. SULFAMETHOXAZOLE AND TRIMETHOPRIM [Concomitant]
     Indication: PROPHYLAXIS
     Dosage: 400/80 MILLIGRAMS
     Route: 048
  12. SULFAMETHOXAZOLE AND TRIMETHOPRIM [Concomitant]
     Indication: PNEUMOCYSTIS JIROVECI PNEUMONIA
  13. REBAMIPIDE [Concomitant]
     Indication: DRUG USE FOR UNKNOWN INDICATION
  14. ALFACALCIDOL [Concomitant]
     Indication: DRUG USE FOR UNKNOWN INDICATION
  15. ATORVASTATIN CALCIUM [Concomitant]
     Indication: DRUG USE FOR UNKNOWN INDICATION
  16. CANDESARTAN CILEXETIL [Concomitant]
     Indication: DRUG USE FOR UNKNOWN INDICATION

REACTIONS (2)
  - CYSTITIS [None]
  - NERVE COMPRESSION [None]
